FAERS Safety Report 9732240 (Version 1)
Quarter: 2013Q4

REPORT INFORMATION
  Report Type: Spontaneous
  Country: US (occurrence: None)
  Receive Date: 20131204
  Receipt Date: 20131204
  Transmission Date: 20140711
  Serious: No
  Sender: FDA-Public Use
  Company Number: None

PATIENT
  Age: 63 Year
  Sex: Male

DRUGS (1)
  1. STIVARGA 40MG BAYER [Suspect]
     Indication: COLON CANCER
     Route: 048
     Dates: start: 20130918

REACTIONS (5)
  - Syncope [None]
  - Dizziness [None]
  - Confusional state [None]
  - Hypertension [None]
  - Hypotension [None]
